FAERS Safety Report 16256396 (Version 2)
Quarter: 2020Q2

REPORT INFORMATION
  Report Type: Spontaneous
  Country: US (occurrence: US)
  Receive Date: 20190430
  Receipt Date: 20200430
  Transmission Date: 20200713
  Serious: Yes (Hospitalization)
  Sender: FDA-Public Use
  Company Number: US-ABBVIE-18S-163-2511783-00

PATIENT
  Age: 25 Year
  Sex: Female

DRUGS (1)
  1. CREON [Suspect]
     Active Substance: PANCRELIPASE AMYLASE\PANCRELIPASE LIPASE\PANCRELIPASE PROTEASE
     Indication: CYSTIC FIBROSIS
     Route: 065

REACTIONS (17)
  - Hospitalisation [Unknown]
  - Adjustment disorder [Unknown]
  - Dyspnoea [Unknown]
  - Asthenia [Unknown]
  - Lethargy [Unknown]
  - Exercise tolerance decreased [Unknown]
  - Cough [Unknown]
  - Fatigue [Unknown]
  - Dyspepsia [Unknown]
  - Unhealthy diet [Unknown]
  - Anxiety [Unknown]
  - Pulmonary function test decreased [Not Recovered/Not Resolved]
  - Infection [Unknown]
  - Malaise [Unknown]
  - Treatment noncompliance [Unknown]
  - Abdominal pain upper [Unknown]
  - Blood glucose increased [Unknown]
